FAERS Safety Report 11147668 (Version 2)
Quarter: 2015Q2

REPORT INFORMATION
  Report Type: Report from Study
  Country: AT (occurrence: AT)
  Receive Date: 20150529
  Receipt Date: 20150602
  Transmission Date: 20150821
  Serious: Yes (Death, Hospitalization, Other)
  Sender: FDA-Public Use
  Company Number: AT-ROCHE-1579147

PATIENT
  Age: 75 Year
  Sex: Male

DRUGS (2)
  1. VEMURAFENIB [Suspect]
     Active Substance: VEMURAFENIB
     Indication: MALIGNANT MELANOMA STAGE IV
     Route: 065
     Dates: start: 20150505, end: 20150521
  2. COBIMETINIB [Suspect]
     Active Substance: COBIMETINIB
     Indication: MALIGNANT MELANOMA STAGE IV
     Dosage: LAST DOSE 20/MAY/2015
     Route: 065
     Dates: start: 20150506

REACTIONS (8)
  - Hypoglycaemia [Recovered/Resolved]
  - Asthenia [Recovered/Resolved]
  - Atrioventricular block [Recovered/Resolved]
  - Transaminases increased [Unknown]
  - Lethargy [Recovered/Resolved]
  - Altered state of consciousness [Fatal]
  - Blood bilirubin increased [Unknown]
  - Bradycardia [Recovered/Resolved]

NARRATIVE: CASE EVENT DATE: 20150515
